FAERS Safety Report 9706883 (Version 1)
Quarter: 2013Q4

REPORT INFORMATION
  Report Type: Spontaneous
  Country: US (occurrence: US)
  Receive Date: 20131125
  Receipt Date: 20131125
  Transmission Date: 20140711
  Serious: Yes (Hospitalization)
  Sender: FDA-Public Use
  Company Number: US-BAYER-2013-142375

PATIENT
  Age: 42 Year
  Sex: Female

DRUGS (11)
  1. YAZ [Suspect]
  2. YASMIN [Suspect]
     Indication: HIRSUTISM
  3. YASMIN [Suspect]
     Indication: POLYCYSTIC OVARIES
  4. AVELOX [Concomitant]
     Dosage: 400 MG, UNK
     Route: 048
     Dates: start: 20031005
  5. LOTENSIN HCT [Concomitant]
     Dosage: 20/12.5
     Route: 048
     Dates: start: 20031015
  6. SYNTHROID [Concomitant]
     Dosage: UNK
     Route: 048
     Dates: start: 20031107
  7. LISINOPRIL [Concomitant]
     Dosage: 20 MG, UNK
     Route: 048
     Dates: start: 20031107
  8. CLARITIN-D [Concomitant]
     Dosage: UNK MG, UNK
     Route: 048
     Dates: start: 20031107
  9. NASONEX [Concomitant]
     Dosage: UNK
     Dates: start: 20031107
  10. ZYRTEC [Concomitant]
  11. VICODIN [Concomitant]
     Indication: PAIN

REACTIONS (2)
  - Deep vein thrombosis [None]
  - Pulmonary embolism [Recovered/Resolved]
